FAERS Safety Report 5095477-5 (Version None)
Quarter: 2006Q3

REPORT INFORMATION
  Report Type: 
  Country: None (occurrence: None)
  Receive Date: 20060901
  Receipt Date: 20060901
  Transmission Date: 20061208
  Serious: Yes (Hospitalization)
  Sender: FDA-Public Use
  Company Number: None

PATIENT
  Sex: Male
  Weight: 120.6568 kg

DRUGS (1)
  1. BARACLUDE [Suspect]
     Indication: HEPATITIS B
     Dosage: 0.5 MG QD PO
     Route: 048
     Dates: start: 20050509, end: 20060306

REACTIONS (2)
  - CHROMATURIA [None]
  - RHABDOMYOLYSIS [None]
